FAERS Safety Report 21791945 (Version 1)
Quarter: 2022Q4

REPORT INFORMATION
  Report Type: Report from Study
  Country: US (occurrence: US)
  Receive Date: 20221229
  Receipt Date: 20221229
  Transmission Date: 20230112
  Serious: Yes (Other)
  Sender: FDA-Public Use
  Company Number: US-JNJFOC-20221249096

PATIENT
  Sex: Male

DRUGS (1)
  1. SIMPONI [Suspect]
     Active Substance: GOLIMUMAB
     Indication: Rheumatoid arthritis
     Route: 058
     Dates: start: 202209

REACTIONS (10)
  - Crohn^s disease [Unknown]
  - Rheumatoid arthritis [Unknown]
  - Sinus disorder [Unknown]
  - Dysphagia [Unknown]
  - Dry throat [Unknown]
  - Dysphonia [Unknown]
  - Pharyngeal swelling [Unknown]
  - Upper respiratory tract infection [Unknown]
  - Product dose omission issue [Unknown]
  - Fall [Unknown]
